FAERS Safety Report 7617276-X (Version None)
Quarter: 2011Q3

REPORT INFORMATION
  Report Type: 
  Country: None (occurrence: None)
  Receive Date: 20110718
  Receipt Date: 20110706
  Transmission Date: 20111222
  Serious: Yes (Hospitalization)
  Sender: FDA-Public Use
  Company Number: US-ELI_LILLY_AND_COMPANY-US201011007296

PATIENT
  Sex: Female
  Weight: 58.957 kg

DRUGS (11)
  1. VITAMIN K TAB [Concomitant]
     Dosage: UNK, 3/W
  2. CALCIUM CARBONATE [Concomitant]
  3. MAGNESIUM [Concomitant]
  4. C-VITAMIN [Concomitant]
  5. CRANBERRY [Concomitant]
  6. FORTEO [Suspect]
     Indication: OSTEOPOROSIS
     Dosage: 20 UG, QD
     Dates: start: 20101118
  7. POTASSIUM [Concomitant]
  8. FORTEO [Suspect]
     Dosage: 20 UG, QD
  9. FERROUS SULFATE TAB [Concomitant]
  10. VITAMIN D [Concomitant]
     Dosage: UNK
  11. FISH OIL [Concomitant]

REACTIONS (9)
  - SKIN INJURY [None]
  - FALL [None]
  - HEART RATE IRREGULAR [None]
  - ASTHENIA [None]
  - VOMITING [None]
  - ILL-DEFINED DISORDER [None]
  - URINARY TRACT INFECTION [None]
  - TREMOR [None]
  - FEAR [None]
